FAERS Safety Report 12856543 (Version 2)
Quarter: 2016Q4

REPORT INFORMATION
  Report Type: Report from Study
  Country: BR (occurrence: BR)
  Receive Date: 20161018
  Receipt Date: 20161026
  Transmission Date: 20170207
  Serious: Yes (Hospitalization, Other)
  Sender: FDA-Public Use
  Company Number: PHHY2016BR130314

PATIENT
  Sex: Female
  Weight: 69 kg

DRUGS (9)
  1. DIOVAN AMLO FIX [Suspect]
     Active Substance: AMLODIPINE\VALSARTAN
     Indication: HYPERTENSION
     Dosage: 1 DF (AMLODIPINE 5 MG, VALSARTAN 160 MG), QHS
     Route: 048
  2. DIOVAN AMLO FIX [Suspect]
     Active Substance: AMLODIPINE\VALSARTAN
     Dosage: 2 DF (AMLODIPINE 5 MG, VALSARTAN 160 MG), QD (FROM 25 DAYS AGO TO 15 DAYS AGO)
     Route: 048
  3. NEBILET [Concomitant]
     Active Substance: NEBIVOLOL
     Indication: HEART RATE ABNORMAL
     Dosage: 0.5 DF, QD
     Route: 048
  4. DIAZEPAM. [Concomitant]
     Active Substance: DIAZEPAM
     Indication: SLEEP DISORDER
     Dosage: 1 DF, QD (OVER 15 YEARS)
     Route: 048
  5. FLUX [Concomitant]
     Indication: PROPHYLAXIS
     Dosage: 1 DF, QD (ABOUT 3 YEARS)
     Route: 048
  6. FLUX [Concomitant]
     Indication: HEART RATE ABNORMAL
  7. CRESTOR [Concomitant]
     Active Substance: ROSUVASTATIN CALCIUM
     Indication: BLOOD CHOLESTEROL ABNORMAL
     Route: 065
  8. NEBILET [Concomitant]
     Active Substance: NEBIVOLOL
     Dosage: 1 DF, QD (HALF IN THE MORNING AND HALF AT NIGHT)
     Route: 048
  9. NEBILET [Concomitant]
     Active Substance: NEBIVOLOL
     Dosage: 1 DF, QD (OVER 15 YEARS)
     Route: 048

REACTIONS (10)
  - Cardiac valve disease [Recovered/Resolved]
  - Cardiac disorder [Unknown]
  - Pollakiuria [Recovered/Resolved]
  - Swelling face [Recovered/Resolved]
  - Eye swelling [Unknown]
  - Peripheral swelling [Recovered/Resolved]
  - Lung disorder [Unknown]
  - Antiphospholipid antibodies [Recovered/Resolved]
  - Pulmonary oedema [Recovered/Resolved]
  - Weight decreased [Recovered/Resolved]
